FAERS Safety Report 12312575 (Version 3)
Quarter: 2016Q3

REPORT INFORMATION
  Report Type: Report from Study
  Country: JP (occurrence: JP)
  Receive Date: 20160428
  Receipt Date: 20160701
  Transmission Date: 20161109
  Serious: Yes (Hospitalization, Other)
  Sender: FDA-Public Use
  Company Number: JP-BRISTOL-MYERS SQUIBB COMPANY-BMS-2016-025099

PATIENT
  Age: 6 Decade
  Sex: Male

DRUGS (15)
  1. NIVOLUMAB [Suspect]
     Active Substance: NIVOLUMAB
     Dosage: 3 MG/KG, UNK
     Route: 041
  2. NERIPROCT [Concomitant]
     Indication: PRODUCT USED FOR UNKNOWN INDICATION
     Dosage: UNK
     Route: 065
     Dates: start: 20160322, end: 20160524
  3. PROTECADIN [Concomitant]
     Active Substance: LAFUTIDINE
     Indication: PRODUCT USED FOR UNKNOWN INDICATION
     Dosage: UNK, ONE TIME DOSE
     Route: 065
     Dates: start: 20160405, end: 20160602
  4. NIVOLUMAB [Suspect]
     Active Substance: NIVOLUMAB
     Dosage: 160 MG, UNK
     Route: 041
     Dates: start: 20160524, end: 20160524
  5. ASACOL [Concomitant]
     Active Substance: MESALAMINE
     Indication: PRODUCT USED FOR UNKNOWN INDICATION
     Dosage: 2400 MG, UNK
     Route: 065
     Dates: start: 20160318, end: 20160602
  6. NIVOLUMAB [Suspect]
     Active Substance: NIVOLUMAB
     Indication: NON-SMALL CELL LUNG CANCER RECURRENT
     Dosage: 3 MG/KG, UNK
     Route: 041
     Dates: start: 20160303, end: 20160303
  7. NIVOLUMAB [Suspect]
     Active Substance: NIVOLUMAB
     Dosage: 170 MG, UNK
     Route: 041
     Dates: start: 201604, end: 201604
  8. NIVOLUMAB [Suspect]
     Active Substance: NIVOLUMAB
     Dosage: 160 MG, UNK
     Route: 041
     Dates: start: 20160510, end: 20160510
  9. NIVOLUMAB [Suspect]
     Active Substance: NIVOLUMAB
     Dosage: 170 MG, UNK
     Route: 041
     Dates: start: 20160426, end: 20160426
  10. LIPACREON [Concomitant]
     Active Substance: PANCRELIPASE
     Indication: PRODUCT USED FOR UNKNOWN INDICATION
     Dosage: UNK
     Route: 065
     Dates: start: 20160512, end: 20160602
  11. ASACOL [Concomitant]
     Active Substance: MESALAMINE
     Dosage: 3600 UNK, UNK
     Route: 065
     Dates: start: 20160603, end: 20160610
  12. PREDONINE [Concomitant]
     Active Substance: PREDNISOLONE\PREDNISOLONE ACETATE\PREDNISOLONE SODIUM SUCCINATE
     Indication: PRODUCT USED FOR UNKNOWN INDICATION
     Dosage: UNK
     Route: 065
     Dates: start: 20160405, end: 20160526
  13. NIVOLUMAB [Suspect]
     Active Substance: NIVOLUMAB
     Dosage: 170 MG, UNK
     Route: 041
     Dates: start: 20160303, end: 20160303
  14. NIVOLUMAB [Suspect]
     Active Substance: NIVOLUMAB
     Dosage: 170 MG, UNK
     Route: 041
     Dates: start: 20160331, end: 20160331
  15. MIYA-BM [Concomitant]
     Active Substance: CLOSTRIDIUM BUTYRICUM SPORES STRAIN M-55
     Indication: PRODUCT USED FOR UNKNOWN INDICATION
     Dosage: UNK
     Route: 065
     Dates: start: 20160512

REACTIONS (2)
  - Colitis ulcerative [Recovered/Resolved]
  - Colitis [Not Recovered/Not Resolved]

NARRATIVE: CASE EVENT DATE: 20160314
